FAERS Safety Report 6923465-X (Version None)
Quarter: 2010Q3

REPORT INFORMATION
  Report Type: 
  Country: None (occurrence: None)
  Receive Date: 20100813
  Receipt Date: 20100803
  Transmission Date: 20110219
  Serious: Yes (Other)
  Sender: FDA-Public Use
  Company Number: US-PFIZER INC-2010097791

PATIENT
  Sex: Female
  Weight: 96.599 kg

DRUGS (12)
  1. NEURONTIN [Suspect]
     Indication: FIBROMYALGIA
     Dosage: 100 MG, 2X/DAY
     Route: 048
     Dates: start: 20100401, end: 20100101
  2. SECTRAL [Suspect]
     Indication: HEART RATE INCREASED
     Dosage: UNK
     Route: 048
  3. EFFEXOR [Suspect]
     Indication: DEPRESSION
     Dosage: 100 MG, 1X/DAY
     Route: 048
  4. BENADRYL [Concomitant]
     Indication: COUGH
     Dosage: UNK
  5. SITAGLIPTIN [Concomitant]
     Indication: DIABETES MELLITUS
     Dosage: 100 MG, 1X/DAY
     Route: 048
  6. LEVOTHYROXINE [Concomitant]
     Indication: HYPOTHYROIDISM
     Dosage: 150 UG, 1X/DAY
     Route: 048
  7. ALBUTEROL SULFATE [Concomitant]
     Indication: ASTHMA
     Dosage: 90 UG, AS NEEDED
  8. NORFLEX [Concomitant]
     Indication: FIBROMYALGIA
     Dosage: 100 MG, 2X/DAY
  9. BENICAR HCT [Concomitant]
     Indication: HYPERTENSION
     Dosage: 40/25 MG
     Route: 048
  10. ZANTAC [Concomitant]
     Indication: GASTRIC DISORDER
     Dosage: 150 MG, AS NEEDED
     Route: 048
  11. ZYRTEC [Concomitant]
     Dosage: UNK
     Route: 048
  12. LYRICA [Concomitant]
     Indication: FIBROMYALGIA
     Dosage: UNK
     Route: 048
     Dates: start: 20100301, end: 20100401

REACTIONS (4)
  - DYSPNOEA [None]
  - HYPERSENSITIVITY [None]
  - OBSTRUCTIVE AIRWAYS DISORDER [None]
  - SWELLING FACE [None]
